FAERS Safety Report 6701011-3 (Version None)
Quarter: 2010Q2

REPORT INFORMATION
  Report Type: 
  Country: None (occurrence: None)
  Receive Date: 20100428
  Receipt Date: 20100420
  Transmission Date: 20101027
  Serious: Yes (Death, Hospitalization, Other)
  Sender: FDA-Public Use
  Company Number: NL-WYE-G05575310

PATIENT
  Sex: Male

DRUGS (2)
  1. TORISEL [Suspect]
     Indication: MANTLE CELL LYMPHOMA
     Dosage: 3 TIMES 175 MG AND 3 TIMES 75 MG
     Dates: start: 20100205, end: 20100215
  2. TORISEL [Suspect]
     Dosage: 3 TIMES 175 MG AND 3 TIMES 75 MG
     Dates: start: 20100101, end: 20100101

REACTIONS (7)
  - CONDITION AGGRAVATED [None]
  - DEATH [None]
  - HEPATIC FUNCTION ABNORMAL [None]
  - LEUKAEMIA RECURRENT [None]
  - MALAISE [None]
  - METASTASES TO CENTRAL NERVOUS SYSTEM [None]
  - THROMBOCYTOPENIA [None]
